FAERS Safety Report 25421971 (Version 1)
Quarter: 2025Q2

REPORT INFORMATION
  Report Type: Report from Study
  Country: US (occurrence: US)
  Receive Date: 20250611
  Receipt Date: 20250611
  Transmission Date: 20250716
  Serious: Yes (Other)
  Sender: AUROBINDO
  Company Number: US-AUROBINDO-AUR-APL-2022-024837

PATIENT
  Age: 60 Year
  Sex: Female

DRUGS (4)
  1. METHYLPREDNISOLONE [Suspect]
     Active Substance: METHYLPREDNISOLONE
     Indication: Transplant rejection
     Route: 065
     Dates: start: 20220522
  2. LAPINE T-LYMPHOCYTE IMMUNE GLOBULIN [Suspect]
     Active Substance: LAPINE T-LYMPHOCYTE IMMUNE GLOBULIN
     Indication: Transplant rejection
     Route: 065
  3. RITUXIMAB [Suspect]
     Active Substance: RITUXIMAB
     Indication: Hepatocellular carcinoma
     Route: 065
     Dates: end: 20201217
  4. NIVOLUMAB [Concomitant]
     Active Substance: NIVOLUMAB
     Indication: Hepatocellular carcinoma
     Route: 065

REACTIONS (1)
  - Drug ineffective [Unknown]
